FAERS Safety Report 20132686 (Version 1)
Quarter: 2021Q4

REPORT INFORMATION
  Report Type: Report from Study
  Country: CA (occurrence: CA)
  Receive Date: 20211130
  Receipt Date: 20211130
  Transmission Date: 20220303
  Serious: Yes (Other)
  Sender: FDA-Public Use
  Company Number: CA-NOVARTISPH-PHHY2014CA171086

PATIENT
  Age: 42 Year
  Sex: Male

DRUGS (2)
  1. GILENYA [Suspect]
     Active Substance: FINGOLIMOD HYDROCHLORIDE
     Indication: Multiple sclerosis
     Dosage: UNK
     Route: 048
     Dates: start: 20140922, end: 20211014
  2. GILENYA [Suspect]
     Active Substance: FINGOLIMOD HYDROCHLORIDE
     Indication: Relapsing-remitting multiple sclerosis

REACTIONS (4)
  - Expanded disability status scale score increased [Unknown]
  - Stress [Unknown]
  - Balance disorder [Unknown]
  - Asthenia [Unknown]

NARRATIVE: CASE EVENT DATE: 20141225
